FAERS Safety Report 7237447-4 (Version None)
Quarter: 2011Q1

REPORT INFORMATION
  Report Type: 
  Country: None (occurrence: None)
  Receive Date: 20110121
  Receipt Date: 20110113
  Transmission Date: 20110831
  Serious: Yes (Disabling)
  Sender: FDA-Public Use
  Company Number: FR-MPIJNJ-2011-00169

PATIENT

DRUGS (7)
  1. QUITAXON [Concomitant]
     Route: 048
  2. LEKOVIT CA [Concomitant]
     Route: 048
  3. DEXAMETHASONE [Suspect]
     Dosage: 20 MG, UNK
     Route: 048
     Dates: start: 20100614
  4. LAROXYL [Concomitant]
     Route: 048
  5. ARANESP [Concomitant]
     Dosage: 150 UG, UNK
     Route: 058
  6. VELCADE [Suspect]
     Indication: MULTIPLE MYELOMA
     Dosage: 1.9 MG, UNK
     Route: 042
     Dates: start: 20100614, end: 20101108
  7. LEXOMIL [Concomitant]
     Route: 048

REACTIONS (2)
  - DYSKINESIA [None]
  - BALANCE DISORDER [None]
